FAERS Safety Report 8473468-1 (Version None)
Quarter: 2012Q2

REPORT INFORMATION
  Report Type: 
  Country: None (occurrence: None)
  Receive Date: 20120622
  Receipt Date: 20120622
  Transmission Date: 20120825
  Serious: Yes (Hospitalization)
  Sender: FDA-Public Use
  Company Number: None

PATIENT
  Sex: Female
  Weight: 98 kg

DRUGS (2)
  1. CARBOPLATIN [Suspect]
     Dosage: 518 MG
  2. TAXOL [Suspect]
     Dosage: 270 MG

REACTIONS (12)
  - ABDOMINAL DISTENSION [None]
  - CONSTIPATION [None]
  - ASCITES [None]
  - FATIGUE [None]
  - DISEASE PROGRESSION [None]
  - METASTASES TO PERITONEUM [None]
  - DYSPNOEA [None]
  - PERITONEAL NEOPLASM [None]
  - VOMITING [None]
  - PAIN [None]
  - NAUSEA [None]
  - PLEURAL EFFUSION [None]
